FAERS Safety Report 8487072-2 (Version None)
Quarter: 2012Q3

REPORT INFORMATION
  Report Type: 
  Country: None (occurrence: None)
  Receive Date: 20120704
  Receipt Date: 20120702
  Transmission Date: 20120928
  Serious: Yes (Other)
  Sender: FDA-Public Use
  Company Number: PHHY2012NL056833

PATIENT
  Sex: Male

DRUGS (2)
  1. ZOMETA [Suspect]
     Dosage: 4 MG/100ML 1X PER 28 DAYS
     Route: 042
     Dates: start: 20120601
  2. ZOMETA [Suspect]
     Indication: RENAL CELL CARCINOMA
     Dosage: 4 MG/100ML 1X PER 28 DAYS
     Route: 042
     Dates: start: 20120504

REACTIONS (2)
  - OSTEOMYELITIS [None]
  - PAIN IN JAW [None]
